FAERS Safety Report 8391146-4 (Version None)
Quarter: 2012Q2

REPORT INFORMATION
  Report Type: 
  Country: None (occurrence: None)
  Receive Date: 20120529
  Receipt Date: 20120515
  Transmission Date: 20120825
  Serious: Yes (Other)
  Sender: FDA-Public Use
  Company Number: SE-ELI_LILLY_AND_COMPANY-SE201205005569

PATIENT
  Sex: Male
  Weight: 75.5 kg

DRUGS (4)
  1. CONCERTA [Concomitant]
     Indication: ATTENTION DEFICIT/HYPERACTIVITY DISORDER
     Dosage: 72 MG, UNK
  2. STRATTERA [Suspect]
     Dosage: 25 MG, UNK
  3. STRATTERA [Suspect]
     Dosage: 50 MG, UNK
  4. STRATTERA [Suspect]
     Indication: ATTENTION DEFICIT/HYPERACTIVITY DISORDER
     Dosage: 25 MG, UNK

REACTIONS (1)
  - SYNCOPE [None]
